FAERS Safety Report 16635500 (Version 1)
Quarter: 2019Q3

REPORT INFORMATION
  Report Type: Spontaneous
  Country: US (occurrence: US)
  Receive Date: 20190726
  Receipt Date: 20190726
  Transmission Date: 20191004
  Serious: No
  Sender: FDA-Public Use
  Company Number: US-ACCORD-130636

PATIENT
  Age: 61 Year
  Sex: Female
  Weight: 106.59 kg

DRUGS (11)
  1. ATORVASTATIN/ATORVASTATIN CALCIUM [Concomitant]
  2. ABILIFY [Concomitant]
     Active Substance: ARIPIPRAZOLE
  3. LEVOTHYROXINE/LEVOTHYROXINE SODIUM [Concomitant]
  4. LOSARTAN/LOSARTAN POTASSIUM [Concomitant]
  5. VENLAFAXINE/VENLAFAXINE HYDROCHLORIDE [Concomitant]
  6. KETOCONAZOLE. [Concomitant]
     Active Substance: KETOCONAZOLE
  7. ACETYLSALICYLIC ACID [Concomitant]
     Active Substance: ASPIRIN
  8. LETROZOLE. [Suspect]
     Active Substance: LETROZOLE
     Indication: BREAST CANCER
     Dosage: 2.5 MG ONCE DAILY
     Route: 048
     Dates: start: 201810
  9. HYDROCHLOROTHIAZIDE. [Concomitant]
     Active Substance: HYDROCHLOROTHIAZIDE
  10. XANAX [Concomitant]
     Active Substance: ALPRAZOLAM
  11. PROLIA [Concomitant]
     Active Substance: DENOSUMAB

REACTIONS (6)
  - Somnolence [Not Recovered/Not Resolved]
  - Skin exfoliation [Not Recovered/Not Resolved]
  - Vision blurred [Recovered/Resolved]
  - Onychoclasis [Not Recovered/Not Resolved]
  - Dyspnoea [Not Recovered/Not Resolved]
  - Weight decreased [Not Recovered/Not Resolved]
